FAERS Safety Report 23815906 (Version 1)
Quarter: 2024Q2

REPORT INFORMATION
  Report Type: Spontaneous
  Country: CA (occurrence: CA)
  Receive Date: 20240503
  Receipt Date: 20240503
  Transmission Date: 20240716
  Serious: Yes (Life-Threatening, Hospitalization)
  Sender: FDA-Public Use
  Company Number: CA-TEVA-VS-3191958

PATIENT
  Age: 3 Year
  Sex: Female

DRUGS (1)
  1. DOXORUBICIN [Suspect]
     Active Substance: DOXORUBICIN
     Indication: B precursor type acute leukaemia
     Dosage: TIME INTERVAL: TOTAL: DOSE FORM:SOLUTION INTRAVENOUS
     Route: 042

REACTIONS (6)
  - Respiratory syncytial virus test positive [Recovered/Resolved]
  - Cough [Recovered/Resolved]
  - Enterovirus test positive [Recovered/Resolved]
  - Febrile neutropenia [Recovered/Resolved]
  - Human rhinovirus test positive [Recovered/Resolved]
  - Oropharyngeal pain [Recovered/Resolved]
